FAERS Safety Report 12798957 (Version 1)
Quarter: 2016Q3

REPORT INFORMATION
  Report Type: Spontaneous
  Country: FR (occurrence: FR)
  Receive Date: 20160930
  Receipt Date: 20160930
  Transmission Date: 20161109
  Serious: Yes (Death, Hospitalization)
  Sender: FDA-Public Use
  Company Number: FR-PFIZER INC-2016441376

PATIENT
  Age: 38 Year
  Sex: Male

DRUGS (8)
  1. HOLOXAN [Suspect]
     Active Substance: IFOSFAMIDE
     Indication: TESTIS CANCER
     Dosage: 4120 MG (ON D1, D3, D4, D5), CYCLIC (1 CYCLE)
     Route: 042
     Dates: start: 20160822, end: 20160826
  2. MESNA EG [Concomitant]
     Active Substance: MESNA
     Indication: PROPHYLAXIS
     Dosage: 5000 MG (ON D1, D2, D3, D4), CYCLIC
     Route: 042
     Dates: start: 20160823, end: 20160826
  3. PRIMPERAN [Concomitant]
     Active Substance: METOCLOPRAMIDE HYDROCHLORIDE
     Indication: PROPHYLAXIS OF NAUSEA AND VOMITING
     Dosage: 10 MG (ON D1, D2, D3, D4, D5), CYCLIC
     Route: 048
     Dates: start: 20160822, end: 20160826
  4. CARBOPLATINE HOSPIRA [Suspect]
     Active Substance: CARBOPLATIN
     Indication: TESTIS CANCER
     Dosage: 340 MG (ON D1, D2, D4), CYCLIC
     Route: 042
     Dates: start: 20160823, end: 20160826
  5. EMEND [Concomitant]
     Active Substance: APREPITANT
     Indication: PROPHYLAXIS OF NAUSEA AND VOMITING
     Dosage: 80 MG (ON D1, D2, D3, D4, D5), CYCLIC
     Route: 048
     Dates: start: 20160822, end: 20160826
  6. ETOPOSIDE MYLAN [Suspect]
     Active Substance: ETOPOSIDE
     Indication: TESTIS CANCER
     Dosage: 260 MG (ON D1, D2, D3, D4), CYCLIC (1 CYCLE)
     Route: 042
     Dates: start: 20160823, end: 20160826
  7. ALOXI [Concomitant]
     Active Substance: PALONOSETRON HYDROCHLORIDE
     Indication: PROPHYLAXIS OF NAUSEA AND VOMITING
     Dosage: 260 UG (ON D1, D3), CYCLIC
     Route: 042
     Dates: start: 20160822, end: 20160824
  8. SOLUPRED /00016201/ [Concomitant]
     Active Substance: PREDNISOLONE
     Indication: PROPHYLAXIS
     Dosage: 60 MG (ON D1, D2, D3, D4, D5), CYCLIC
     Route: 048
     Dates: start: 20160822, end: 20160826

REACTIONS (5)
  - Polyuria [Recovered/Resolved]
  - Diarrhoea [Fatal]
  - Vomiting [Unknown]
  - Acute kidney injury [Fatal]
  - Bone marrow failure [Fatal]

NARRATIVE: CASE EVENT DATE: 20160824
